APPROVED DRUG PRODUCT: DYAZIDE
Active Ingredient: HYDROCHLOROTHIAZIDE; TRIAMTERENE
Strength: 25MG;37.5MG **Federal Register determination that product was not discontinued or withdrawn for safety or effectiveness reasons**
Dosage Form/Route: CAPSULE;ORAL
Application: N016042 | Product #003
Applicant: GLAXOSMITHKLINE LLC
Approved: Mar 3, 1994 | RLD: Yes | RS: No | Type: DISCN